FAERS Safety Report 15860006 (Version 1)
Quarter: 2019Q1

REPORT INFORMATION
  Report Type: Report from Study
  Country: ES (occurrence: ES)
  Receive Date: 20190123
  Receipt Date: 20190123
  Transmission Date: 20190417
  Serious: Yes (Life-Threatening, Hospitalization)
  Sender: FDA-Public Use
  Company Number: ES-MYLANLABS-2019M1005566

PATIENT
  Age: 87 Year
  Sex: Male

DRUGS (4)
  1. AMLODIPINO ALTER [Concomitant]
     Active Substance: AMLODIPINE BESYLATE
     Indication: HYPERTENSION
     Dosage: 1-0-0
     Route: 048
     Dates: start: 20110101
  2. SPIRAXIN [Concomitant]
     Active Substance: RIFAXIMIN
     Dosage: UNK UNK, 1-0-0
     Route: 055
     Dates: start: 20110101
  3. SERETIDE [Concomitant]
     Active Substance: FLUTICASONE PROPIONATE\SALMETEROL XINAFOATE
     Indication: CHRONIC OBSTRUCTIVE PULMONARY DISEASE
     Dosage: 2 DOSAGE FORM, BID (2-0-2)
     Route: 055
     Dates: start: 20110101
  4. ENALAPRIL/HYDROCHLOROTHIAZIDE MYLAN 20 MG/12,5 MG, COMPRIM? S?CABLE [Suspect]
     Active Substance: ENALAPRIL\HYDROCHLOROTHIAZIDE
     Indication: HYPERTENSION
     Dosage: 1-0-0
     Route: 048
     Dates: start: 20110101, end: 20171116

REACTIONS (2)
  - Atrioventricular block complete [Recovered/Resolved]
  - Hyperkalaemia [Recovered/Resolved]

NARRATIVE: CASE EVENT DATE: 20171116
